FAERS Safety Report 6571522-2 (Version None)
Quarter: 2010Q1

REPORT INFORMATION
  Report Type: 
  Country: None (occurrence: None)
  Receive Date: 20100205
  Receipt Date: 20100125
  Transmission Date: 20100710
  Serious: Yes (Death, Hospitalization)
  Sender: FDA-Public Use
  Company Number: DE-SOLVAY-00309004521

PATIENT
  Age: 24727 Day
  Sex: Male
  Weight: 78 kg

DRUGS (2)
  1. CREON [Suspect]
     Indication: PANCREATIC INSUFFICIENCY
     Dosage: DAILY DOSE:  UNKNOWN, AS USED: 25.000IE, FREQUENCY: AS NEEDED.
     Route: 048
     Dates: start: 20090507, end: 20090901
  2. GEMZITABINE [Suspect]
     Indication: METASTATIC NEOPLASM
     Dosage: DAILY DOSE:  UNKNOWN
     Route: 042
     Dates: start: 20090601, end: 20090901

REACTIONS (4)
  - ESCHERICHIA SEPSIS [None]
  - JAUNDICE [None]
  - METASTATIC NEOPLASM [None]
  - REFLUX OESOPHAGITIS [None]
